FAERS Safety Report 15504611 (Version 1)
Quarter: 2018Q4

REPORT INFORMATION
  Report Type: Spontaneous
  Country: US (occurrence: US)
  Receive Date: 20181009
  Receipt Date: 20181009
  Transmission Date: 20190205
  Serious: Yes (Hospitalization)
  Sender: FDA-Public Use
  Company Number: None

PATIENT
  Age: 25 Year
  Sex: Female
  Weight: 61.2 kg

DRUGS (2)
  1. MULTIVITAMIN [Concomitant]
     Active Substance: VITAMINS
  2. METHYLPREDNISOLONE SOD SUCC 1,000MG IN DEXTROSE 5% D5W 250ML IVPB [Suspect]
     Active Substance: METHYLPREDNISOLONE SODIUM SUCCINATE
     Indication: OPTIC NEURITIS
     Dates: start: 20180804, end: 20180809

REACTIONS (7)
  - Photophobia [None]
  - Eye pain [None]
  - Blood potassium decreased [None]
  - Chest pain [None]
  - Hypophagia [None]
  - Lacrimation increased [None]
  - Dyspnoea [None]

NARRATIVE: CASE EVENT DATE: 20180806
